FAERS Safety Report 7114490 (Version 2)
Quarter: 2013Q3

REPORT INFORMATION
  Report Type: Spontaneous
  Country: IN (occurrence: None)
  Receive Date: 20090903
  Receipt Date: 20130709
  Transmission Date: 20140515
  Serious: Yes (Other)
  Sender: FDA-Public Use
  Company Number: AUR-APL-2009-00458

PATIENT
  Age: 43 Year
  Sex: Female

DRUGS (2)
  1. LAMOTRIGINE [Suspect]
     Indication: MANIA
     Dosage: INITIALLY 50 MG/DAY,?DOSE INCREASED TO 300 MG/DAY
  2. LEVOSULPIRIDE [Suspect]
     Indication: BIPOLAR DISORDER
     Dosage: DOSE INCREASED TO 400 MG/DAY

REACTIONS (1)
  - Tardive dyskinesia [None]
